FAERS Safety Report 7357725-8 (Version None)
Quarter: 2011Q1

REPORT INFORMATION
  Report Type: 
  Country: None (occurrence: None)
  Receive Date: 20110309
  Receipt Date: 20110225
  Transmission Date: 20110831
  Serious: Yes (Disabling)
  Sender: FDA-Public Use
  Company Number: GER/UKI/11/0017599

PATIENT
  Age: 76 Year
  Sex: Female

DRUGS (1)
  1. ALENDRONIC ACID (ALENDRONIC ACID) [Suspect]
     Indication: PRODUCT USED FOR UNKNOWN INDICATION
     Dosage: 1 IN 1 WK

REACTIONS (4)
  - GAIT DISTURBANCE [None]
  - ERYTHEMA [None]
  - OEDEMA PERIPHERAL [None]
  - MEDICATION ERROR [None]
